FAERS Safety Report 17743718 (Version 2)
Quarter: 2020Q2

REPORT INFORMATION
  Report Type: Report from Study
  Country: DE (occurrence: DE)
  Receive Date: 20200505
  Receipt Date: 20200511
  Transmission Date: 20200714
  Serious: Yes (Hospitalization, Other)
  Sender: FDA-Public Use
  Company Number: DE-BRISTOL-MYERS SQUIBB COMPANY-BMS-2020-030001

PATIENT
  Age: 56 Year
  Sex: Female
  Weight: 102 kg

DRUGS (10)
  1. IPILIMUMAB [Suspect]
     Active Substance: IPILIMUMAB
     Indication: OESOPHAGEAL ADENOCARCINOMA
     Route: 065
  2. NIVOLUMAB [Suspect]
     Active Substance: NIVOLUMAB
     Indication: ADENOCARCINOMA GASTRIC
     Dosage: 240 MILLIGRAM
     Route: 065
     Dates: start: 20191112
  3. FLUOROURACIL. [Suspect]
     Active Substance: FLUOROURACIL
     Indication: ADENOCARCINOMA GASTRIC
     Dosage: 3950 MILLIGRAM
     Route: 065
  4. IPILIMUMAB [Suspect]
     Active Substance: IPILIMUMAB
     Indication: ADENOCARCINOMA GASTRIC
     Dosage: 100 MILLIGRAM
     Route: 065
     Dates: start: 20191112
  5. FLUOROURACIL. [Suspect]
     Active Substance: FLUOROURACIL
     Indication: OESOPHAGEAL ADENOCARCINOMA
     Route: 065
  6. OXALIPLATIN. [Suspect]
     Active Substance: OXALIPLATIN
     Indication: OESOPHAGEAL ADENOCARCINOMA
     Route: 065
  7. LEUCOVORIN CALCIUM. [Suspect]
     Active Substance: LEUCOVORIN CALCIUM
     Indication: ADENOCARCINOMA GASTRIC
     Dosage: 660 MILLIGRAM
     Route: 065
  8. NIVOLUMAB [Suspect]
     Active Substance: NIVOLUMAB
     Indication: OESOPHAGEAL ADENOCARCINOMA
     Route: 065
  9. OXALIPLATIN. [Suspect]
     Active Substance: OXALIPLATIN
     Indication: ADENOCARCINOMA GASTRIC
     Dosage: 100 MILLIGRAM
     Route: 065
  10. LEUCOVORIN CALCIUM. [Suspect]
     Active Substance: LEUCOVORIN CALCIUM
     Indication: OESOPHAGEAL ADENOCARCINOMA
     Route: 065

REACTIONS (3)
  - Adrenocortical insufficiency acute [Not Recovered/Not Resolved]
  - Monoparesis [Recovered/Resolved]
  - Hypophysitis [Not Recovered/Not Resolved]

NARRATIVE: CASE EVENT DATE: 20200407
